FAERS Safety Report 9586196 (Version 1)
Quarter: 2013Q4

REPORT INFORMATION
  Report Type: Spontaneous
  Country: US (occurrence: US)
  Receive Date: 20131003
  Receipt Date: 20131003
  Transmission Date: 20140711
  Serious: No
  Sender: FDA-Public Use
  Company Number: US-BAYER-2013-118133

PATIENT
  Age: 76 Year
  Sex: Female

DRUGS (1)
  1. FINACEA [Suspect]
     Indication: ROSACEA
     Dosage: UNK UNK, BID
     Route: 061

REACTIONS (3)
  - Erythema [None]
  - Pruritus [None]
  - Burning sensation [Recovering/Resolving]
